FAERS Safety Report 5972561-2 (Version None)
Quarter: 2008Q4

REPORT INFORMATION
  Report Type: 
  Country: None (occurrence: None)
  Receive Date: 20081201
  Receipt Date: 20081117
  Transmission Date: 20090506
  Serious: Yes (Hospitalization)
  Sender: FDA-Public Use
  Company Number: B0548131A

PATIENT
  Age: 34 Year
  Sex: Male

DRUGS (3)
  1. LAMIVUDINE [Suspect]
     Indication: HIV INFECTION
     Dates: start: 20031001
  2. ZIDOVUDINE [Suspect]
     Indication: HIV INFECTION
     Route: 065
     Dates: start: 20031001
  3. NEVIRAPINE [Suspect]
     Indication: HIV INFECTION
     Route: 065
     Dates: start: 20031001

REACTIONS (10)
  - BLOOD ALKALINE PHOSPHATASE ABNORMAL [None]
  - C-REACTIVE PROTEIN ABNORMAL [None]
  - CRYPTOCOCCOSIS [None]
  - GAMMA-GLUTAMYLTRANSFERASE ABNORMAL [None]
  - IMMUNE RECONSTITUTION SYNDROME [None]
  - LYMPHADENITIS [None]
  - LYMPHADENOPATHY [None]
  - ORAL CANDIDIASIS [None]
  - PYREXIA [None]
  - RED BLOOD CELL SEDIMENTATION RATE ABNORMAL [None]
